FAERS Safety Report 17273403 (Version 1)
Quarter: 2020Q1

REPORT INFORMATION
  Report Type: Spontaneous
  Country: US (occurrence: US)
  Receive Date: 20200115
  Receipt Date: 20200115
  Transmission Date: 20200409
  Serious: Yes (Death)
  Sender: FDA-Public Use
  Company Number: US-PFIZER INC-2020015076

PATIENT
  Age: 58 Year
  Sex: Female

DRUGS (6)
  1. DOXEPIN HCL [Suspect]
     Active Substance: DOXEPIN HYDROCHLORIDE
     Dosage: UNK
     Route: 065
  2. DIAZEPAM. [Suspect]
     Active Substance: DIAZEPAM
     Dosage: UNK
     Route: 065
  3. DOXEPIN HCL [Suspect]
     Active Substance: DOXEPIN HYDROCHLORIDE
     Dosage: UNK (INGESTION)
     Route: 048
  4. OXYCODONE [Suspect]
     Active Substance: OXYCODONE
     Dosage: UNK (INGESTION)
     Route: 048
  5. OXYCODONE [Suspect]
     Active Substance: OXYCODONE
     Dosage: UNK
  6. DIAZEPAM. [Suspect]
     Active Substance: DIAZEPAM
     Dosage: UNK (INGESTION)
     Route: 048

REACTIONS (1)
  - Death [Fatal]

NARRATIVE: CASE EVENT DATE: 2018
